FAERS Safety Report 5863281-3 (Version None)
Quarter: 2008Q3

REPORT INFORMATION
  Report Type: 
  Country: None (occurrence: None)
  Receive Date: 20080828
  Receipt Date: 20080819
  Transmission Date: 20090109
  Serious: Yes (Death, Hospitalization)
  Sender: FDA-Public Use
  Company Number: US-AMGEN-US300765

PATIENT
  Sex: Male

DRUGS (9)
  1. PANITUMUMAB [Suspect]
     Indication: COLORECTAL CANCER
     Route: 042
     Dates: start: 20080729, end: 20080729
  2. IRINOTECAN HCL [Suspect]
     Route: 065
  3. FLUOROURACIL [Suspect]
     Route: 065
  4. LEUCOVORIN CALCIUM [Suspect]
     Route: 065
  5. DYAZIDE [Concomitant]
  6. ELAVIL [Concomitant]
  7. LEVAQUIN [Concomitant]
     Dates: start: 20080808
  8. TUMS [Concomitant]
  9. MULTI-VITAMINS [Concomitant]

REACTIONS (2)
  - ANAEMIA [None]
  - LEUKOPENIA [None]
